FAERS Safety Report 11455721 (Version 1)
Quarter: 2015Q3

REPORT INFORMATION
  Report Type: Spontaneous
  Country: IT (occurrence: IT)
  Receive Date: 20150903
  Receipt Date: 20150903
  Transmission Date: 20151125
  Serious: Yes (Other)
  Sender: FDA-Public Use
  Company Number: IT-BAYER-2015-410762

PATIENT

DRUGS (10)
  1. ACETYLSALICYLIC ACID({=100 MG) [Suspect]
     Active Substance: ASPIRIN
     Dosage: UNK
     Route: 064
  2. PENTOTHAL [Concomitant]
     Active Substance: THIOPENTAL SODIUM
     Route: 064
  3. ACETYLSALICYLIC ACID({=100 MG) [Suspect]
     Active Substance: ASPIRIN
     Dosage: UNK
     Route: 064
  4. SEVOFLURANE. [Concomitant]
     Active Substance: SEVOFLURANE
     Route: 064
  5. ATOSIBAN [Concomitant]
     Active Substance: ATOSIBAN
     Route: 064
  6. HEPARIN [Concomitant]
     Active Substance: HEPARIN SODIUM
     Route: 064
  7. PENTOTHAL [Concomitant]
     Active Substance: THIOPENTAL SODIUM
     Route: 064
  8. ATOSIBAN [Concomitant]
     Active Substance: ATOSIBAN
     Route: 064
  9. HEPARIN [Concomitant]
     Active Substance: HEPARIN SODIUM
     Route: 064
  10. SEVOFLURANE. [Concomitant]
     Active Substance: SEVOFLURANE
     Route: 064

REACTIONS (3)
  - Foetal exposure timing unspecified [None]
  - Low birth weight baby [None]
  - Premature baby [None]
